FAERS Safety Report 14258508 (Version 1)
Quarter: 2017Q4

REPORT INFORMATION
  Report Type: Spontaneous
  Country: US (occurrence: US)
  Receive Date: 20171206
  Receipt Date: 20171206
  Transmission Date: 20180321
  Serious: No
  Sender: FDA-Public Use
  Company Number: None

PATIENT
  Sex: Female
  Weight: 58.5 kg

DRUGS (4)
  1. PRENATALS BY WHOLE FOOD [Concomitant]
  2. CABEGOLINE [Concomitant]
  3. MESALAMINE. [Suspect]
     Active Substance: MESALAMINE
     Indication: COLITIS ULCERATIVE
     Route: 048
     Dates: start: 20171108, end: 20171126
  4. LIALDA [Concomitant]
     Active Substance: MESALAMINE

REACTIONS (5)
  - Alopecia [None]
  - Pain [None]
  - Muscle spasms [None]
  - Insomnia [None]
  - Product substitution issue [None]

NARRATIVE: CASE EVENT DATE: 20171115
